FAERS Safety Report 5836370-7 (Version None)
Quarter: 2008Q3

REPORT INFORMATION
  Report Type: 
  Country: None (occurrence: None)
  Receive Date: 20080806
  Receipt Date: 20080806
  Transmission Date: 20090109
  Serious: No
  Sender: FDA-Public Use
  Company Number: None

PATIENT
  Age: 25 Year
  Sex: Female
  Weight: 56.6996 kg

DRUGS (1)
  1. KENALOG [Suspect]
     Indication: MULTIPLE ALLERGIES
     Dosage: 1 SHOT OTHER
     Route: 050
     Dates: start: 20070801, end: 20070801

REACTIONS (4)
  - DRY SKIN [None]
  - INJECTION SITE HAEMATOMA [None]
  - INJECTION SITE MASS [None]
  - INJECTION SITE PRURITUS [None]
